FAERS Safety Report 14132211 (Version 1)
Quarter: 2017Q4

REPORT INFORMATION
  Report Type: Spontaneous
  Country: US (occurrence: US)
  Receive Date: 20171027
  Receipt Date: 20171027
  Transmission Date: 20180321
  Serious: Yes (Other)
  Sender: FDA-Public Use
  Company Number: US-ABBVIE-17K-163-2140081-00

PATIENT

DRUGS (2)
  1. HUMIRA [Suspect]
     Active Substance: ADALIMUMAB
     Indication: PSORIATIC ARTHROPATHY
     Route: 058
  2. HUMIRA [Suspect]
     Active Substance: ADALIMUMAB
     Indication: PSORIASIS
     Dosage: DOUBLE DOSE
     Route: 058

REACTIONS (7)
  - Psoriasis [Unknown]
  - Infection susceptibility increased [Recovered/Resolved]
  - Arthralgia [Unknown]
  - Osteoporosis [Unknown]
  - Arthritis [Unknown]
  - Drug effect incomplete [Unknown]
  - Fungal infection [Unknown]
